FAERS Safety Report 5772953-0 (Version None)
Quarter: 2008Q2

REPORT INFORMATION
  Report Type: 
  Country: None (occurrence: None)
  Receive Date: 20080613
  Receipt Date: 20080603
  Transmission Date: 20081010
  Serious: Yes (Other)
  Sender: FDA-Public Use
  Company Number: FR-PFIZER INC-2008047403

PATIENT
  Sex: Female

DRUGS (4)
  1. LYRICA [Suspect]
     Indication: PAIN
     Dosage: DAILY DOSE:300MG
  2. ALL OTHER THERAPEUTIC PRODUCTS [Concomitant]
  3. TEGELINE [Concomitant]
  4. MOPRAL [Concomitant]

REACTIONS (1)
  - TACHYCARDIA [None]
